FAERS Safety Report 6110761-1 (Version None)
Quarter: 2009Q1

REPORT INFORMATION
  Report Type: 
  Country: None (occurrence: None)
  Receive Date: 20090311
  Receipt Date: 20090302
  Transmission Date: 20090719
  Serious: Yes (Hospitalization, Other)
  Sender: FDA-Public Use
  Company Number: BR-BAYER-200815896LA

PATIENT
  Age: 57 Year
  Sex: Female
  Weight: 36 kg

DRUGS (6)
  1. BETAFERON [Suspect]
     Indication: MULTIPLE SCLEROSIS
     Route: 058
     Dates: start: 20080801, end: 20080907
  2. BETAFERON [Suspect]
     Route: 058
     Dates: start: 20080909
  3. BETAFERON [Suspect]
     Route: 058
     Dates: start: 20071029, end: 20080801
  4. AMLODIPINE [Concomitant]
     Indication: HYPERTENSION
     Dosage: TOTAL DAILY DOSE: 5 MG  UNIT DOSE: 5 MG
     Route: 048
     Dates: start: 19980101
  5. LOSARTAN [Concomitant]
     Indication: DRUG USE FOR UNKNOWN INDICATION
     Dosage: TOTAL DAILY DOSE: 100 MG  UNIT DOSE: 100 MG
     Route: 048
     Dates: start: 19980101
  6. OMEPRAZOLE [Concomitant]
     Indication: PROPHYLAXIS
     Dosage: TOTAL DAILY DOSE: 1 DF
     Route: 048
     Dates: start: 20080801

REACTIONS (12)
  - CHEST PAIN [None]
  - COUGH [None]
  - HAEMATOMA [None]
  - HAEMOPTYSIS [None]
  - HYPERTENSIVE CRISIS [None]
  - MUSCULAR WEAKNESS [None]
  - PAIN IN EXTREMITY [None]
  - PHARYNGITIS [None]
  - PYREXIA [None]
  - THROMBOCYTOPENIA [None]
  - VASCULAR RUPTURE [None]
  - WEIGHT DECREASED [None]
